FAERS Safety Report 9954392 (Version 2)
Quarter: 2014Q1

REPORT INFORMATION
  Report Type: Spontaneous
  Country: GB (occurrence: GB)
  Receive Date: 20140304
  Receipt Date: 20140311
  Transmission Date: 20141002
  Serious: Yes (Other)
  Sender: FDA-Public Use
  Company Number: GB-PFIZER INC-2014058165

PATIENT
  Age: 59 Year
  Sex: Female

DRUGS (4)
  1. ATORVASTATIN CALCIUM [Suspect]
     Dosage: 10 MG AT NIGHT
     Route: 048
     Dates: start: 20130816
  2. BENDROFLUMETHIAZIDE [Suspect]
     Dosage: 2.5 MG IN THE MORNING
     Route: 048
     Dates: start: 20120216
  3. LEVOTHYROXINE SODIUM [Suspect]
     Dosage: 100 UG IN THE MORNING
     Route: 048
     Dates: start: 20040101
  4. FEMSEVEN [Suspect]
     Dosage: UNK
     Route: 062
     Dates: start: 20130816

REACTIONS (1)
  - Dysgeusia [Not Recovered/Not Resolved]
